FAERS Safety Report 11587910 (Version 2)
Quarter: 2015Q4

REPORT INFORMATION
  Report Type: Spontaneous
  Country: FI (occurrence: FI)
  Receive Date: 20151001
  Receipt Date: 20151209
  Transmission Date: 20160304
  Serious: Yes (Life-Threatening, Hospitalization, Other)
  Sender: FDA-Public Use
  Company Number: FI-MYLANLABS-2015M1032913

PATIENT

DRUGS (3)
  1. OLANZAPINE MYLAN [Suspect]
     Active Substance: OLANZAPINE
     Indication: SCHIZOPHRENIA
     Dosage: 20 MG, QD
     Route: 048
     Dates: start: 20131015, end: 20140129
  2. RISPERIDON MYLAN [Suspect]
     Active Substance: RISPERIDONE
     Indication: SCHIZOPHRENIA, PARANOID TYPE
     Dosage: 16 MG, UNK (4 MG 1 TABLET PLUS 3 TABLETS DAILY)
     Route: 048
     Dates: start: 20130821, end: 20130929
  3. OLANZAPINE MYLAN [Suspect]
     Active Substance: OLANZAPINE
     Dosage: 20 MG, DAY

REACTIONS (5)
  - Erythema [Recovered/Resolved]
  - Swollen tongue [Recovered/Resolved]
  - Erythema [Recovered/Resolved]
  - Pharyngeal oedema [Recovered/Resolved]
  - Dyspnoea [Recovered/Resolved]

NARRATIVE: CASE EVENT DATE: 20130929
